FAERS Safety Report 4904779-1 (Version None)
Quarter: 2006Q1

REPORT INFORMATION
  Report Type: 
  Country: None (occurrence: None)
  Receive Date: 20060208
  Receipt Date: 20051004
  Transmission Date: 20060701
  Serious: No
  Sender: FDA-Public Use
  Company Number: US-GLAXOSMITHKLINE-A0576956A

PATIENT
  Age: 52 Year
  Sex: Male

DRUGS (4)
  1. PAROXETINE HCL [Suspect]
     Dosage: 30MG PER DAY
     Route: 048
     Dates: start: 20050926
  2. CALAN [Concomitant]
  3. LORAZEPAM [Concomitant]
  4. TOPROL [Concomitant]

REACTIONS (3)
  - DIZZINESS [None]
  - HEADACHE [None]
  - VERTIGO [None]
